FAERS Safety Report 6163509-9 (Version None)
Quarter: 2009Q2

REPORT INFORMATION
  Report Type: 
  Country: None (occurrence: None)
  Receive Date: 20090422
  Receipt Date: 20090413
  Transmission Date: 20091009
  Serious: Yes (Hospitalization)
  Sender: FDA-Public Use
  Company Number: BR-BIOGENIDEC-2009BI011512

PATIENT
  Age: 50 Year
  Sex: Female

DRUGS (2)
  1. AVONEX [Suspect]
     Indication: MULTIPLE SCLEROSIS
     Route: 030
     Dates: start: 20040101, end: 20090301
  2. AVONEX [Suspect]
     Route: 030
     Dates: start: 20090301

REACTIONS (8)
  - ALTERED STATE OF CONSCIOUSNESS [None]
  - BRAIN NEOPLASM BENIGN [None]
  - CARDIAC ARREST [None]
  - CONVULSION [None]
  - DYSPEPSIA [None]
  - HAEMATOCHEZIA [None]
  - PNEUMONIA [None]
  - RESPIRATORY ARREST [None]
